FAERS Safety Report 16530633 (Version 1)
Quarter: 2019Q3

REPORT INFORMATION
  Report Type: Spontaneous
  Country: US (occurrence: US)
  Receive Date: 20190523
  Receipt Date: 20190523
  Transmission Date: 20191004
  Serious: No
  Sender: FDA-Public Use
  Company Number: None

PATIENT
  Age: 71 Year
  Sex: Male
  Weight: 67.13 kg

DRUGS (2)
  1. FIRMAGON [Suspect]
     Active Substance: DEGARELIX ACETATE
     Indication: PROSTATE CANCER
     Route: 058
     Dates: start: 201902
  2. FIRMAGON [Suspect]
     Active Substance: DEGARELIX ACETATE
     Indication: SENILE OSTEOPOROSIS
     Route: 058
     Dates: start: 201902

REACTIONS (2)
  - Hypertension [None]
  - Blood pressure inadequately controlled [None]
